FAERS Safety Report 5680661-X (Version None)
Quarter: 2008Q1

REPORT INFORMATION
  Report Type: 
  Country: None (occurrence: None)
  Receive Date: 20080326
  Receipt Date: 20080321
  Transmission Date: 20080703
  Serious: Yes (Hospitalization)
  Sender: FDA-Public Use
  Company Number: US-WYE-H03073808

PATIENT
  Sex: Male
  Weight: 77.18 kg

DRUGS (9)
  1. TIGECYCLINE [Suspect]
     Indication: CELLULITIS
     Route: 042
     Dates: start: 20080307
  2. SENNA [Suspect]
     Indication: CONSTIPATION
     Dosage: UNKNOWN
     Route: 065
     Dates: start: 20080307, end: 20080310
  3. DOCUSATE [Suspect]
     Indication: CONSTIPATION
     Dosage: UNKNOWN
     Route: 065
     Dates: start: 20080307, end: 20080310
  4. METOPROLOL TARTRATE [Concomitant]
     Indication: HYPERTENSION
     Dosage: UNKNOWN
     Route: 065
     Dates: start: 20080307
  5. CALCIUM WITH VITAMIN D [Concomitant]
     Indication: MEDICAL DIET
     Dosage: UNKNOWN
     Route: 065
     Dates: start: 20080307
  6. DIGOXIN [Concomitant]
     Indication: HEART RATE
     Dosage: UNKNOWN
     Route: 065
     Dates: start: 20080307
  7. EPOETIN ALFA [Concomitant]
     Dosage: UNKNOWN
     Route: 065
     Dates: start: 20080307
  8. BISACODYL [Suspect]
     Indication: CONSTIPATION
     Dosage: UNKNOWN
     Route: 065
     Dates: start: 20080307, end: 20080310
  9. COUMADIN [Concomitant]
     Indication: ATRIAL FIBRILLATION
     Dosage: UNKNOWN
     Route: 065
     Dates: start: 20080307

REACTIONS (1)
  - DIARRHOEA [None]
